FAERS Safety Report 14220958 (Version 4)
Quarter: 2020Q3

REPORT INFORMATION
  Report Type: Report from Study
  Country: UA (occurrence: UA)
  Receive Date: 20171124
  Receipt Date: 20190401
  Transmission Date: 20201105
  Serious: Yes (Death, Life-Threatening)
  Sender: FDA-Public Use
  Company Number: UA-ASTRAZENECA-2017SF19067

PATIENT
  Age: 25343 Day
  Sex: Male

DRUGS (11)
  1. MEDI4736 [Suspect]
     Active Substance: DURVALUMAB
     Indication: SMALL CELL LUNG CANCER
     Route: 042
     Dates: start: 20171122, end: 20171122
  2. ETOPOSIDE. [Suspect]
     Active Substance: ETOPOSIDE
     Indication: SMALL CELL LUNG CANCER
     Route: 065
     Dates: start: 20171122, end: 20171122
  3. CARDIOMAGNYL [Concomitant]
     Active Substance: ASPIRIN\MAGNESIUM HYDROXIDE
     Indication: MYOCARDIAL ISCHAEMIA
     Dosage: 75 MG QD
     Route: 048
     Dates: start: 201709
  4. ROSUVASTATIN. [Concomitant]
     Active Substance: ROSUVASTATIN
     Indication: HYPERTENSION
     Dosage: 20 MG QD
     Route: 048
     Dates: start: 201709
  5. GLICLAZIDE [Concomitant]
     Active Substance: GLICLAZIDE
     Indication: TYPE 2 DIABETES MELLITUS
     Dosage: 120 MG QD
     Route: 048
     Dates: start: 200801
  6. METFORMIN [Concomitant]
     Active Substance: METFORMIN HYDROCHLORIDE
     Indication: TYPE 2 DIABETES MELLITUS
     Dosage: 500 MG QD
     Route: 048
     Dates: start: 201701
  7. TREMELIMUMAB. [Suspect]
     Active Substance: TREMELIMUMAB
     Indication: SMALL CELL LUNG CANCER
     Route: 042
     Dates: start: 20171122, end: 20171122
  8. CARVEDILOL. [Concomitant]
     Active Substance: CARVEDILOL
     Indication: HYPERTENSION
     Dosage: 6.25 MG BID
     Route: 048
     Dates: start: 201709
  9. TRIMETAZIDINE [Concomitant]
     Active Substance: TRIMETAZIDINE
     Indication: HYPERTENSION
     Dosage: 35 MG BID
     Route: 048
     Dates: start: 201709
  10. CARBOPLATIN. [Suspect]
     Active Substance: CARBOPLATIN
     Indication: SMALL CELL LUNG CANCER
     Route: 065
     Dates: start: 20171122, end: 20171122
  11. CANDESARTAN. [Concomitant]
     Active Substance: CANDESARTAN
     Indication: HYPERTENSION
     Dosage: 8 MG QD
     Route: 048
     Dates: start: 201709

REACTIONS (3)
  - Pulmonary oedema [Not Recovered/Not Resolved]
  - Pulmonary embolism [Fatal]
  - Brain oedema [Not Recovered/Not Resolved]

NARRATIVE: CASE EVENT DATE: 20171122
